FAERS Safety Report 13917035 (Version 2)
Quarter: 2017Q3

REPORT INFORMATION
  Report Type: Spontaneous
  Country: DK (occurrence: DK)
  Receive Date: 20170829
  Receipt Date: 20170906
  Transmission Date: 20171127
  Serious: Yes (Hospitalization)
  Sender: FDA-Public Use
  Company Number: PHHY2017DK124803

PATIENT
  Age: 50 Year
  Sex: Male

DRUGS (3)
  1. OXAPAX [Suspect]
     Active Substance: OXAZEPAM
     Indication: PARANOIA
     Route: 048
     Dates: end: 20100401
  2. LEPONEX [Suspect]
     Active Substance: CLOZAPINE
     Indication: PARANOIA
     Route: 048
     Dates: end: 200901
  3. ZYPREXA [Suspect]
     Active Substance: OLANZAPINE
     Indication: PARANOIA
     Route: 048
     Dates: end: 20100401

REACTIONS (5)
  - Abdominal pain upper [Recovered/Resolved]
  - Myocardial infarction [Recovered/Resolved]
  - Nausea [Recovered/Resolved]
  - Chest pain [Recovered/Resolved]
  - Nephrolithiasis [Not Recovered/Not Resolved]

NARRATIVE: CASE EVENT DATE: 20130114
